FAERS Safety Report 26134714 (Version 1)
Quarter: 2025Q4

REPORT INFORMATION
  Report Type: Spontaneous
  Country: AE (occurrence: AE)
  Receive Date: 20251209
  Receipt Date: 20251209
  Transmission Date: 20260118
  Serious: Yes (Hospitalization, Other)
  Sender: SCIEGEN PHARMACEUTICALS INC
  Company Number: AE-SCIEGENP-2025SCLIT00384

PATIENT
  Age: 17 Year
  Sex: Female

DRUGS (2)
  1. METFORMIN HYDROCHLORIDE [Suspect]
     Active Substance: METFORMIN HYDROCHLORIDE
     Indication: Polycystic ovaries
     Dosage: 30 TABLETS OF 500 MG
     Route: 048
  2. METFORMIN HYDROCHLORIDE [Suspect]
     Active Substance: METFORMIN HYDROCHLORIDE
     Indication: Polycystic ovarian syndrome
     Route: 065

REACTIONS (5)
  - Toxicity to various agents [Recovered/Resolved]
  - Lactic acidosis [Recovered/Resolved]
  - Suicide attempt [Unknown]
  - Intentional overdose [Unknown]
  - Product use in unapproved indication [Unknown]
